FAERS Safety Report 10209862 (Version 1)
Quarter: 2014Q2

REPORT INFORMATION
  Report Type: Spontaneous
  Country: US (occurrence: US)
  Receive Date: 20140602
  Receipt Date: 20140602
  Transmission Date: 20141212
  Serious: Yes (Other)
  Sender: FDA-Public Use
  Company Number: US-AMGEN-USASP2014038912

PATIENT
  Sex: Female

DRUGS (1)
  1. PROLIA [Suspect]
     Indication: BONE DISORDER
     Dosage: UNK
     Route: 065

REACTIONS (3)
  - Cellulitis [Unknown]
  - Malaise [Unknown]
  - Pain in extremity [Unknown]
